FAERS Safety Report 13840663 (Version 1)
Quarter: 2017Q3

REPORT INFORMATION
  Report Type: Spontaneous
  Country: PT (occurrence: PT)
  Receive Date: 20170807
  Receipt Date: 20170807
  Transmission Date: 20171127
  Serious: Yes (Hospitalization)
  Sender: FDA-Public Use
  Company Number: PT-JNJFOC-20170801437

PATIENT
  Sex: Male

DRUGS (1)
  1. INVEGA [Suspect]
     Active Substance: PALIPERIDONE
     Indication: PRODUCT USED FOR UNKNOWN INDICATION
     Dosage: 6 MG OR 9 MG
     Route: 048
     Dates: start: 201101

REACTIONS (3)
  - Pneumonia [Unknown]
  - Parkinsonism [Unknown]
  - Muscle tightness [Unknown]

NARRATIVE: CASE EVENT DATE: 20170703
